FAERS Safety Report 5885131-1 (Version None)
Quarter: 2008Q3

REPORT INFORMATION
  Report Type: 
  Country: None (occurrence: None)
  Receive Date: 20080915
  Receipt Date: 20080915
  Transmission Date: 20090109
  Serious: Yes (Other)
  Sender: FDA-Public Use
  Company Number: None

PATIENT
  Age: 62 Year
  Sex: Female
  Weight: 99.7913 kg

DRUGS (1)
  1. METOPROLOL TARTRATE [Suspect]
     Indication: HYPERTENSION
     Dosage: ONE TABLET 2 TIMES DAILY PO
     Route: 048
     Dates: start: 20080828, end: 20080910

REACTIONS (6)
  - CHEST PAIN [None]
  - DYSPNOEA [None]
  - FATIGUE [None]
  - HEART RATE DECREASED [None]
  - NAUSEA [None]
  - PHARMACEUTICAL PRODUCT COMPLAINT [None]
